FAERS Safety Report 5445301-3 (Version None)
Quarter: 2007Q3

REPORT INFORMATION
  Report Type: 
  Country: None (occurrence: None)
  Receive Date: 20070906
  Receipt Date: 20070417
  Transmission Date: 20080115
  Serious: No
  Sender: FDA-Public Use
  Company Number: A0647646A

PATIENT
  Age: 76 Year
  Sex: Male

DRUGS (7)
  1. REQUIP [Suspect]
     Indication: PARKINSON'S DISEASE
     Dosage: 5MG TWICE PER DAY
     Route: 048
     Dates: start: 20061001
  2. ZOCOR [Concomitant]
  3. STALEVO 100 [Concomitant]
  4. FLOMAX [Concomitant]
  5. ASPIRIN [Concomitant]
  6. MIRALAX [Concomitant]
  7. ATROVENT [Concomitant]

REACTIONS (3)
  - DIZZINESS [None]
  - DRUG ADMINISTRATION ERROR [None]
  - HYPOTENSION [None]
